FAERS Safety Report 4419954-2 (Version None)
Quarter: 2004Q3

REPORT INFORMATION
  Report Type: 
  Country: None (occurrence: None)
  Receive Date: 20040809
  Receipt Date: 20040316
  Transmission Date: 20050211
  Serious: Yes (Hospitalization)
  Sender: FDA-Public Use
  Company Number: US-GLAXOSMITHKLINE-A0502986A

PATIENT
  Age: 72 Year
  Sex: Female

DRUGS (8)
  1. PAXIL [Suspect]
     Indication: DEPRESSION
     Dosage: 10MG PER DAY
     Route: 048
     Dates: start: 20010101
  2. BUMETANIDE [Concomitant]
  3. OXYGEN [Concomitant]
  4. COMBIVENT [Concomitant]
  5. VANCERIL [Concomitant]
  6. PROVENTIL [Concomitant]
  7. K-DUR 10 [Concomitant]
  8. IPATROPIUM BROMIDE [Concomitant]

REACTIONS (1)
  - WEIGHT DECREASED [None]
